FAERS Safety Report 7664310 (Version 2)
Quarter: 2015Q1

REPORT INFORMATION
  Report Type: Report from Study
  Country: TW (occurrence: TW)
  Receive Date: 20101111
  Receipt Date: 20150212
  Transmission Date: 20150721
  Serious: Yes (Hospitalization)
  Sender: FDA-Public Use
  Company Number: PHHY2010TW73337

PATIENT
  Age: 61 Year
  Sex: Female

DRUGS (2)
  1. NEORAL [Suspect]
     Active Substance: CYCLOSPORINE
     Indication: IMMUNOSUPPRESSION
     Dosage: 250 MG, UNK
     Route: 048
     Dates: end: 20101006
  2. NEORAL [Suspect]
     Active Substance: CYCLOSPORINE
     Indication: RENAL TRANSPLANT
     Dosage: 250 MG, UNK
     Route: 048
     Dates: start: 20090929, end: 20100802

REACTIONS (22)
  - Pulmonary oedema [Recovering/Resolving]
  - Hypertension [Recovering/Resolving]
  - Dizziness [Recovered/Resolved]
  - Nausea [Recovered/Resolved]
  - Orthopnoea [Recovering/Resolving]
  - Urine output decreased [Recovered/Resolved]
  - Cardiomegaly [Recovering/Resolving]
  - Pneumonia [Recovered/Resolved]
  - Stupor [Recovering/Resolving]
  - Influenza [Recovering/Resolving]
  - Postoperative wound infection [Recovered/Resolved]
  - Cardiac failure chronic [Recovering/Resolving]
  - Blood creatinine increased [Unknown]
  - Lung infiltration [Recovering/Resolving]
  - Blood urea increased [Unknown]
  - Pulmonary oedema [Recovered/Resolved]
  - Dyspnoea [Recovered/Resolved]
  - Kidney transplant rejection [Recovered/Resolved]
  - Decreased appetite [Recovered/Resolved]
  - Dyspnoea exertional [Recovering/Resolving]
  - Acute myocardial infarction [Recovering/Resolving]
  - C-reactive protein increased [Unknown]

NARRATIVE: CASE EVENT DATE: 20100803
